FAERS Safety Report 4806944-0 (Version None)
Quarter: 2005Q4

REPORT INFORMATION
  Report Type: 
  Country: None (occurrence: None)
  Receive Date: 20051019
  Receipt Date: 20050930
  Transmission Date: 20060501
  Serious: Yes (Other)
  Sender: FDA-Public Use
  Company Number: EWC050845558

PATIENT
  Age: 29 Year
  Sex: Female

DRUGS (1)
  1. CYMBALTA [Suspect]
     Indication: DEPRESSION
     Dosage: 60 MG DAY
     Dates: start: 20050715

REACTIONS (6)
  - ANGINA PECTORIS [None]
  - CONSTIPATION [None]
  - FEELING ABNORMAL [None]
  - HEADACHE [None]
  - PAIN IN EXTREMITY [None]
  - SENSE OF OPPRESSION [None]
